FAERS Safety Report 4670004-2 (Version None)
Quarter: 2005Q2

REPORT INFORMATION
  Report Type: 
  Country: None (occurrence: None)
  Receive Date: 20050523
  Receipt Date: 20050429
  Transmission Date: 20051028
  Serious: Yes (Life-Threatening, Hospitalization)
  Sender: FDA-Public Use
  Company Number: PHHO2005PL06948

PATIENT
  Age: 61 Year
  Sex: Male
  Weight: 76 kg

DRUGS (5)
  1. ASPIRIN [Concomitant]
  2. NATEGLINIDE VS PLACEBO [Suspect]
     Indication: GLUCOSE TOLERANCE IMPAIRED
     Dosage: LEVEL 1
     Route: 048
     Dates: start: 20030709
  3. NATEGLINIDE VS PLACEBO [Suspect]
     Dosage: LEVEL 2
     Route: 048
     Dates: end: 20050416
  4. PLACEBO OR VALSARTAN [Suspect]
     Indication: CARDIOVASCULAR DISORDER
     Dosage: LEVEL 1
     Route: 048
     Dates: start: 20030709
  5. PLACEBO OR VALSARTAN [Suspect]
     Dosage: LEVEL 2
     Route: 048
     Dates: end: 20050416

REACTIONS (4)
  - ABDOMINAL PAIN [None]
  - DIARRHOEA [None]
  - DUODENITIS [None]
  - PANCREATITIS ACUTE [None]
